FAERS Safety Report 13740208 (Version 5)
Quarter: 2018Q2

REPORT INFORMATION
  Report Type: Spontaneous
  Country: US (occurrence: US)
  Receive Date: 20170711
  Receipt Date: 20180605
  Transmission Date: 20180711
  Serious: No
  Sender: FDA-Public Use
  Company Number: US-ALKERMES INC.-ALK-2017-001437

PATIENT
  Age: 45 Year
  Sex: Female

DRUGS (2)
  1. ARISTADA [Suspect]
     Active Substance: ARIPIPRAZOLE LAUROXIL
     Indication: SCHIZOPHRENIA
     Dosage: 662 MG, QMO
     Route: 030
     Dates: start: 201610
  2. ARISTADA [Suspect]
     Active Substance: ARIPIPRAZOLE LAUROXIL
     Indication: SCHIZOAFFECTIVE DISORDER BIPOLAR TYPE
     Dosage: 662 MG, Q2WK
     Route: 030

REACTIONS (11)
  - Fatigue [Recovering/Resolving]
  - Headache [Not Recovered/Not Resolved]
  - Inappropriate schedule of drug administration [Recovered/Resolved]
  - Decreased activity [Not Recovered/Not Resolved]
  - Restless legs syndrome [Unknown]
  - Frequent bowel movements [Not Recovered/Not Resolved]
  - Hunger [Not Recovered/Not Resolved]
  - Condition aggravated [Recovering/Resolving]
  - Bone pain [Not Recovered/Not Resolved]
  - Pollakiuria [Not Recovered/Not Resolved]
  - Increased appetite [Not Recovered/Not Resolved]

NARRATIVE: CASE EVENT DATE: 201610
